FAERS Safety Report 9257916 (Version 1)
Quarter: 2013Q1

REPORT INFORMATION
  Report Type: Spontaneous
  Country: US (occurrence: None)
  Receive Date: 20121212
  Receipt Date: 20121212
  Transmission Date: 20140127
  Serious: No
  Sender: FDA-Public Use
  Company Number: 1208USA007109

PATIENT
  Age: 59 Year
  Sex: Male

DRUGS (3)
  1. VICTRELIS [Suspect]
     Indication: HEPATITIS C
     Dosage: 800MG, TID, ORAL
     Route: 048
     Dates: start: 201208
  2. PEGASYS [Suspect]
     Indication: HEPATITIS C
     Dosage: UNK
     Dates: start: 201208
  3. RIBASPHERE [Suspect]
     Indication: HEPATITIS C
     Dosage: UNK
     Dates: start: 201208

REACTIONS (8)
  - Abdominal pain upper [None]
  - Abdominal pain [None]
  - Gingival bleeding [None]
  - Vomiting [None]
  - Diarrhoea [None]
  - Dysgeusia [None]
  - Nausea [None]
  - Product quality issue [None]
